FAERS Safety Report 25632510 (Version 1)
Quarter: 2025Q3

REPORT INFORMATION
  Report Type: Spontaneous
  Country: US (occurrence: None)
  Receive Date: 20250731
  Receipt Date: 20250731
  Transmission Date: 20251020
  Serious: Yes (Life-Threatening)
  Sender: FDA-CTU
  Company Number: None

PATIENT
  Age: 60 Year
  Sex: Male
  Weight: 112.5 kg

DRUGS (8)
  1. METFORMIN HYDROCHLORIDE [Suspect]
     Active Substance: METFORMIN HYDROCHLORIDE
     Indication: Glucose tolerance impaired
     Dosage: 100 TABLET(S) AT BEDTIME ORAL
     Route: 048
     Dates: start: 20250610, end: 20250712
  2. EFFEXOR [Concomitant]
     Active Substance: VENLAFAXINE HYDROCHLORIDE
  3. ESCITALOPRAM [Concomitant]
     Active Substance: ESCITALOPRAM OXALATE
  4. ATORVASTATIN [Concomitant]
     Active Substance: ATORVASTATIN
  5. ZINC [Concomitant]
     Active Substance: ZINC
  6. Vit-C [Concomitant]
  7. CALCIUM [Concomitant]
     Active Substance: CALCIUM
  8. Vit-D [Concomitant]

REACTIONS (1)
  - Urinary tract infection [None]

NARRATIVE: CASE EVENT DATE: 20250730
